FAERS Safety Report 6840172-2 (Version None)
Quarter: 2010Q3

REPORT INFORMATION
  Report Type: 
  Country: None (occurrence: None)
  Receive Date: 20100713
  Receipt Date: 20100713
  Transmission Date: 20110219
  Serious: Yes (Life-Threatening, Hospitalization)
  Sender: FDA-Public Use
  Company Number: None

PATIENT
  Age: 46 Year
  Sex: Female
  Weight: 72.5755 kg

DRUGS (1)
  1. YASMIN [Suspect]
     Indication: CONTRACEPTION
     Dosage: 28 DAY BER DAILY PO
     Route: 048
     Dates: start: 20000101, end: 20091012

REACTIONS (4)
  - APPARENT DEATH [None]
  - HAEMORRHAGE [None]
  - HYSTERECTOMY [None]
  - UNEVALUABLE EVENT [None]
